FAERS Safety Report 12495508 (Version 1)
Quarter: 2016Q2

REPORT INFORMATION
  Report Type: Spontaneous
  Country: None (occurrence: TR)
  Receive Date: 20160624
  Receipt Date: 20160624
  Transmission Date: 20160815
  Serious: Yes (Other)
  Sender: FDA-Public Use
  Company Number: TR-MERCK KGAA-1054299

PATIENT

DRUGS (1)
  1. NOVOTHYROX [Suspect]
     Active Substance: LEVOTHYROXINE SODIUM

REACTIONS (12)
  - Red blood cell count decreased [None]
  - Haematocrit decreased [None]
  - Mean cell haemoglobin concentration decreased [None]
  - Neutrophil count increased [None]
  - Mean cell haemoglobin decreased [None]
  - Lymphocyte count increased [None]
  - Eosinophil count increased [None]
  - Blood phosphorus increased [None]
  - Blood bilirubin increased [None]
  - Haemoglobin decreased [None]
  - Monocyte count increased [None]
  - White blood cell count increased [None]
